FAERS Safety Report 5885505-9 (Version None)
Quarter: 2008Q3

REPORT INFORMATION
  Report Type: 
  Country: None (occurrence: None)
  Receive Date: 20080915
  Receipt Date: 20080915
  Transmission Date: 20090109
  Serious: Yes (Hospitalization)
  Sender: FDA-Public Use
  Company Number: None

PATIENT
  Sex: Female
  Weight: 75.2971 kg

DRUGS (1)
  1. GEMCITABINE [Suspect]
     Indication: NON-SMALL CELL LUNG CANCER
     Dosage: 1000MG/M2  QWK-2WK ON/2OFF  042
     Dates: start: 20080401, end: 20080527

REACTIONS (2)
  - ANAEMIA [None]
  - THROMBOCYTOPENIA [None]
